FAERS Safety Report 11248764 (Version 1)
Quarter: 2015Q3

REPORT INFORMATION
  Report Type: Spontaneous
  Country: US (occurrence: US)
  Receive Date: 20150708
  Receipt Date: 20150708
  Transmission Date: 20151125
  Serious: No
  Sender: FDA-Public Use
  Company Number: US-ELI_LILLY_AND_COMPANY-US201009006356

PATIENT
  Age: 42 Year
  Sex: Female

DRUGS (4)
  1. PROZAC [Suspect]
     Active Substance: FLUOXETINE HYDROCHLORIDE
     Dosage: 40 MG, DAILY (1/D)
     Dates: start: 2010, end: 201007
  2. PROZAC [Suspect]
     Active Substance: FLUOXETINE HYDROCHLORIDE
     Dates: start: 201007
  3. ABILIFY [Concomitant]
     Active Substance: ARIPIPRAZOLE
  4. PROZAC [Suspect]
     Active Substance: FLUOXETINE HYDROCHLORIDE
     Indication: ANXIETY
     Dosage: 20 MG, DAILY (1/D)
     Dates: start: 2007, end: 2010

REACTIONS (11)
  - Menstrual disorder [Unknown]
  - Nervousness [Unknown]
  - Decreased appetite [Unknown]
  - Chills [Unknown]
  - Pyrexia [Unknown]
  - Influenza like illness [Unknown]
  - Abnormal behaviour [Unknown]
  - Off label use [Not Recovered/Not Resolved]
  - Headache [Unknown]
  - Anxiety [Unknown]
  - Fear [Unknown]

NARRATIVE: CASE EVENT DATE: 2007
